FAERS Safety Report 26120019 (Version 1)
Quarter: 2025Q4

REPORT INFORMATION
  Report Type: Spontaneous
  Country: EU (occurrence: EU)
  Receive Date: 20251204
  Receipt Date: 20251204
  Transmission Date: 20260118
  Serious: Yes (Hospitalization, Other)
  Sender: RANBAXY
  Company Number: EU-SUN PHARMACEUTICAL INDUSTRIES INC-2025R1-539327

PATIENT
  Age: 8 Year
  Sex: Male

DRUGS (2)
  1. METHOTREXATE [Suspect]
     Active Substance: METHOTREXATE
     Indication: Psoriasis
     Dosage: 5 MILLIGRAM, WEEKLY
     Route: 048
  2. FOLIC ACID [Concomitant]
     Active Substance: FOLIC ACID
     Indication: Psoriasis
     Dosage: UNK
     Route: 065

REACTIONS (6)
  - Incorrect dosage administered [Unknown]
  - Hypoalbuminaemia [Recovering/Resolving]
  - Lymphopenia [Unknown]
  - Mucosal inflammation [Recovering/Resolving]
  - Skin ulcer [Recovering/Resolving]
  - Toxicity to various agents [Unknown]
